FAERS Safety Report 7232471-X (Version None)
Quarter: 2011Q1

REPORT INFORMATION
  Report Type: 
  Country: None (occurrence: None)
  Receive Date: 20110107
  Receipt Date: 20101227
  Transmission Date: 20110831
  Serious: Yes (Hospitalization, Other)
  Sender: FDA-Public Use
  Company Number: DSJ-2010-22796

PATIENT
  Age: 63 Year
  Sex: Female

DRUGS (4)
  1. BENICAR [Suspect]
     Indication: HYPERTENSION
     Dosage: 20 MG (20 MG,1 IN 1 D),PER ORAL ; 40 MG (40 MG,1 IN 1 D),PER ORAL
     Route: 048
     Dates: start: 20091207, end: 20101201
  2. BENICAR [Suspect]
     Indication: HYPERTENSION
     Dosage: 20 MG (20 MG,1 IN 1 D),PER ORAL ; 40 MG (40 MG,1 IN 1 D),PER ORAL
     Route: 048
     Dates: start: 20101201
  3. HORMONE [Concomitant]
  4. DIPROPIONATE BETAMETASONE/BETAMETHASONE DISODIUM PHOSPHATE [Suspect]
     Indication: BACK PAIN
     Dosage: PER ORAL
     Route: 048
     Dates: start: 20101201, end: 20101201

REACTIONS (3)
  - DRUG INEFFECTIVE [None]
  - BACK PAIN [None]
  - KNEE ARTHROPLASTY [None]
